FAERS Safety Report 7129973-3 (Version None)
Quarter: 2010Q4

REPORT INFORMATION
  Report Type: 
  Country: None (occurrence: None)
  Receive Date: 20101130
  Receipt Date: 20101122
  Transmission Date: 20110411
  Serious: Yes (Other)
  Sender: FDA-Public Use
  Company Number: JP-ABBOTT-10P-087-0686778-00

PATIENT
  Age: 45 Year
  Sex: Male

DRUGS (1)
  1. KLARICID TABLETS [Suspect]
     Indication: PRODUCT USED FOR UNKNOWN INDICATION
     Dates: start: 20090401, end: 20090401

REACTIONS (1)
  - LIVER DISORDER [None]
